FAERS Safety Report 7416861-8 (Version None)
Quarter: 2011Q2

REPORT INFORMATION
  Report Type: 
  Country: None (occurrence: None)
  Receive Date: 20110415
  Receipt Date: 20110401
  Transmission Date: 20111010
  Serious: Yes (Other)
  Sender: FDA-Public Use
  Company Number: CA-JNJFOC-20110401930

PATIENT
  Sex: Male
  Weight: 109 kg

DRUGS (5)
  1. LORAZEPAM [Concomitant]
     Dosage: PRN
     Route: 065
  2. PERCOCET [Concomitant]
     Indication: ARTHRALGIA
     Dosage: PRN
     Route: 065
  3. REMICADE [Suspect]
     Indication: CROHN'S DISEASE
     Route: 042
  4. CIPRO [Concomitant]
     Route: 065
  5. OXYCONTIN [Concomitant]
     Indication: ARTHRALGIA
     Dosage: PRN
     Route: 065

REACTIONS (2)
  - CHEST DISCOMFORT [None]
  - TOOTH DISORDER [None]
